FAERS Safety Report 4630333-5 (Version None)
Quarter: 2005Q2

REPORT INFORMATION
  Report Type: 
  Country: None (occurrence: None)
  Receive Date: 20050405
  Receipt Date: 20050405
  Transmission Date: 20051028
  Serious: Yes (Hospitalization)
  Sender: FDA-Public Use
  Company Number: None

PATIENT
  Sex: Female
  Weight: 63.8211 kg

DRUGS (1)
  1. DOCETAXEL 100MG/M2 [Suspect]
     Indication: CERVIX CARCINOMA RECURRENT
     Dosage: 169MG,Q21DAYS,IV
     Route: 042
     Dates: start: 20041206

REACTIONS (2)
  - FEBRILE NEUTROPENIA [None]
  - WHITE BLOOD CELL COUNT DECREASED [None]
